FAERS Safety Report 7314575-6 (Version None)
Quarter: 2011Q1

REPORT INFORMATION
  Report Type: 
  Country: None (occurrence: None)
  Receive Date: 20110225
  Receipt Date: 20101007
  Transmission Date: 20110831
  Serious: No
  Sender: FDA-Public Use
  Company Number: US-MYLANLABS-2010S1018503

PATIENT
  Age: 26 Year
  Sex: Male

DRUGS (2)
  1. ANTIBIOTICS FOR TOPICAL USE [Concomitant]
  2. AMNESTEEM [Suspect]
     Indication: ACNE
     Route: 048
     Dates: start: 20100928, end: 20101001

REACTIONS (1)
  - DEPRESSION [None]
